FAERS Safety Report 9786955 (Version 1)
Quarter: 2013Q4

REPORT INFORMATION
  Report Type: Spontaneous
  Country: US (occurrence: US)
  Receive Date: 20131227
  Receipt Date: 20131227
  Transmission Date: 20140711
  Serious: Yes (Hospitalization, Disabling)
  Sender: FDA-Public Use
  Company Number: US-ACTAVIS-2013-23589

PATIENT
  Age: 80 Year
  Sex: Male

DRUGS (8)
  1. TRIAMCINOLONE ACETONIDE (AMALLC) [Suspect]
     Indication: LUMBAR SPINAL STENOSIS
     Dosage: 80 MG, SINGLE
     Route: 008
  2. LIDOCAINE [Concomitant]
     Indication: EPIDURAL TEST DOSE
     Dosage: 0.5 ML ,CONC 1%, SINGLE
     Route: 008
  3. LIDOCAINE [Concomitant]
     Indication: LUMBAR SPINAL STENOSIS
     Dosage: 1 ML, CONC 1 %, SINGLE
     Route: 008
  4. VALSARTAN [Concomitant]
     Indication: PRODUCT USED FOR UNKNOWN INDICATION
     Dosage: UNK
     Route: 065
  5. HYDROCHLOROTHIAZIDE [Concomitant]
     Indication: PRODUCT USED FOR UNKNOWN INDICATION
     Dosage: UNK
     Route: 065
  6. DIAZEPAM [Concomitant]
     Indication: PRODUCT USED FOR UNKNOWN INDICATION
     Dosage: UNK
     Route: 065
  7. HYDROCODONE/ACETAMINOPHEN          /00607101/ [Concomitant]
     Indication: PRODUCT USED FOR UNKNOWN INDICATION
     Dosage: UNK
     Route: 065
  8. PRAVASTATIN [Concomitant]
     Dosage: UNK
     Route: 065

REACTIONS (2)
  - Paraplegia [Not Recovered/Not Resolved]
  - Spinal cord infarction [Not Recovered/Not Resolved]
